FAERS Safety Report 25427228 (Version 2)
Quarter: 2025Q3

REPORT INFORMATION
  Report Type: Spontaneous
  Country: EU (occurrence: EU)
  Receive Date: 20250612
  Receipt Date: 20250909
  Transmission Date: 20251021
  Serious: Yes (Other)
  Sender: CELLTRION
  Company Number: EU-ABBVIE-6064896

PATIENT

DRUGS (21)
  1. ADALIMUMAB [Suspect]
     Active Substance: ADALIMUMAB
     Indication: Epilepsy
     Route: 058
     Dates: start: 2018, end: 2022
  2. ADALIMUMAB [Suspect]
     Active Substance: ADALIMUMAB
     Indication: Rasmussen encephalitis
  3. ADALIMUMAB [Suspect]
     Active Substance: ADALIMUMAB
     Indication: Seizure
     Dates: start: 2018, end: 2020
  4. RITUXIMAB [Suspect]
     Active Substance: RITUXIMAB
     Indication: Seizure
     Route: 065
  5. PHENYTOIN [Concomitant]
     Active Substance: PHENYTOIN
     Dates: start: 2021
  6. VALPROATE [Concomitant]
     Active Substance: VALPROIC ACID
     Dates: start: 2021
  7. LEVETIRACETAM [Concomitant]
     Active Substance: LEVETIRACETAM
  8. OXCARBAZEPINE [Concomitant]
     Active Substance: OXCARBAZEPINE
  9. LAMOTRIGINE [Concomitant]
     Active Substance: LAMOTRIGINE
  10. LACOSAMIDE [Concomitant]
     Active Substance: LACOSAMIDE
  11. CLOBAZAM [Concomitant]
     Active Substance: CLOBAZAM
  12. CANNABIS SATIVA SUBSP. INDICA TOP [Concomitant]
     Active Substance: CANNABIS SATIVA SUBSP. INDICA TOP
  13. PERAMPANEL [Concomitant]
     Active Substance: PERAMPANEL
  14. BRIVARACETAM [Concomitant]
     Active Substance: BRIVARACETAM
  15. PREDNISONE [Concomitant]
     Active Substance: PREDNISONE
  16. AZATHIOPRINE [Concomitant]
     Active Substance: AZATHIOPRINE
  17. METHOTREXATE [Concomitant]
     Active Substance: METHOTREXATE
  18. MYCOPHENOLATE MOFETIL [Concomitant]
     Active Substance: MYCOPHENOLATE MOFETIL
  19. CENOBAMATE [Concomitant]
     Active Substance: CENOBAMATE
     Dates: start: 2021
  20. CENOBAMATE [Concomitant]
     Active Substance: CENOBAMATE
     Dates: start: 2021
  21. LORAZEPAM [Concomitant]
     Active Substance: LORAZEPAM

REACTIONS (8)
  - Partial seizures [Unknown]
  - Seizure [Unknown]
  - Status epilepticus [Unknown]
  - Adverse event [Unknown]
  - Drug intolerance [Unknown]
  - Intentional product use issue [Unknown]
  - Off label use [Unknown]
  - Intentional product use issue [Unknown]
